FAERS Safety Report 9168289 (Version 2)
Quarter: 2013Q2

REPORT INFORMATION
  Report Type: Spontaneous
  Country: GB (occurrence: None)
  Receive Date: 20130305
  Receipt Date: 20130417
  Transmission Date: 20140414
  Serious: Yes (Hospitalization, Other)
  Sender: FDA-Public Use
  Company Number: GB-DEXPHARM-20130067

PATIENT
  Age: 19 Year
  Sex: Male

DRUGS (3)
  1. ESOMEPRAZOLE [Suspect]
     Indication: ABDOMINAL DISTENSION
     Dosage: 1 IN 1 D
     Route: 048
     Dates: start: 20130207, end: 20130208
  2. OMEPRAZOLE [Suspect]
     Indication: ABDOMINAL DISTENSION
     Dosage: 20 MG, 1 IN 1 D, ORAL
     Route: 048
  3. ESOMEPRAZOLE [Suspect]
     Indication: GASTROINTESTINAL DISORDER
     Dosage: 40 MG, 1 IN 1 D, ORAL
     Route: 048
     Dates: start: 20130207, end: 20130208

REACTIONS (4)
  - Stevens-Johnson syndrome [None]
  - Viral infection [None]
  - Cytomegalovirus infection [None]
  - Drug ineffective [None]
